FAERS Safety Report 25130829 (Version 2)
Quarter: 2025Q2

REPORT INFORMATION
  Report Type: Spontaneous
  Country: US (occurrence: US)
  Receive Date: 20250327
  Receipt Date: 20250404
  Transmission Date: 20250717
  Serious: Yes (Other)
  Sender: TEVA
  Company Number: US-TEVA-VS-3312397

PATIENT
  Age: 28 Year
  Sex: Female

DRUGS (1)
  1. AMPHETAMINE SULFATE\DEXTROAMPHETAMINE [Suspect]
     Active Substance: AMPHETAMINE SULFATE\DEXTROAMPHETAMINE
     Indication: Attention deficit hyperactivity disorder
     Dosage: CAPSULES - EXTENDED / SUSTAINED RELEASE
     Route: 065
     Dates: end: 202411

REACTIONS (8)
  - Intellectual disability [Unknown]
  - Anxiety [Unknown]
  - Autism spectrum disorder [Unknown]
  - Dysarthria [Unknown]
  - Brain fog [Unknown]
  - Aphasia [Unknown]
  - Memory impairment [Unknown]
  - Mental impairment [Unknown]

NARRATIVE: CASE EVENT DATE: 20241101
